FAERS Safety Report 4532334-4 (Version None)
Quarter: 2004Q4

REPORT INFORMATION
  Report Type: 
  Country: None (occurrence: None)
  Receive Date: 20041206
  Receipt Date: 20041028
  Transmission Date: 20050328
  Serious: Yes (Other)
  Sender: FDA-Public Use
  Company Number: US_0411107555

PATIENT
  Sex: Female

DRUGS (2)
  1. CYMBALTA [Suspect]
     Indication: MAJOR DEPRESSION
  2. PROZAC [Suspect]
     Indication: MAJOR DEPRESSION

REACTIONS (2)
  - DRUG EFFECT DECREASED [None]
  - SUICIDE ATTEMPT [None]
